FAERS Safety Report 6832112-7 (Version None)
Quarter: 2010Q3

REPORT INFORMATION
  Report Type: 
  Country: None (occurrence: None)
  Receive Date: 20100712
  Receipt Date: 20100702
  Transmission Date: 20110219
  Serious: Yes (Life-Threatening)
  Sender: FDA-Public Use
  Company Number: GXKR2010TW07375

PATIENT
  Age: 67 Year
  Sex: Female
  Weight: 50 kg

DRUGS (2)
  1. LORAZEPAM [Suspect]
     Indication: SEDATION
     Dosage: TITRATED UP TO 10 MG/H
  2. TICARCILLIN/CLAVULANATE POTASSIUM [Concomitant]
     Indication: PNEUMONIA
     Dosage: 2 G, Q12H
     Route: 042

REACTIONS (2)
  - HAEMODIALYSIS [None]
  - METABOLIC ACIDOSIS [None]
